FAERS Safety Report 19937775 (Version 2)
Quarter: 2021Q4

REPORT INFORMATION
  Report Type: Spontaneous
  Country: US (occurrence: US)
  Receive Date: 20211011
  Receipt Date: 20211119
  Transmission Date: 20220303
  Serious: Yes (Life-Threatening, Hospitalization)
  Sender: FDA-Public Use
  Company Number: US-DRREDDYS-SPO/USA/21/0142393

PATIENT
  Age: 30 Year
  Sex: Female

DRUGS (9)
  1. CHLORPROMAZINE [Suspect]
     Active Substance: CHLORPROMAZINE
     Indication: Bipolar disorder
     Dosage: P.R.N
  2. CHLORPROMAZINE [Suspect]
     Active Substance: CHLORPROMAZINE
  3. CHLORPROMAZINE [Suspect]
     Active Substance: CHLORPROMAZINE
  4. VALPROATE SODIUM [Suspect]
     Active Substance: VALPROATE SODIUM
     Indication: Bipolar disorder
     Dosage: TAPERED
  5. AMISULPRIDE [Suspect]
     Active Substance: AMISULPRIDE
     Indication: Bipolar disorder
  6. CLOZAPINE [Suspect]
     Active Substance: CLOZAPINE
     Indication: Bipolar disorder
  7. CLOZAPINE [Suspect]
     Active Substance: CLOZAPINE
  8. HALOPERIDOL [Suspect]
     Active Substance: HALOPERIDOL
     Indication: Bipolar disorder
     Route: 030
  9. BIPERIDEN [Concomitant]
     Active Substance: BIPERIDEN
     Indication: Bipolar disorder
     Route: 030

REACTIONS (1)
  - Neuroleptic malignant syndrome [Recovered/Resolved]
